FAERS Safety Report 7682853-7 (Version None)
Quarter: 2011Q3

REPORT INFORMATION
  Report Type: 
  Country: None (occurrence: None)
  Receive Date: 20110815
  Receipt Date: 20110808
  Transmission Date: 20111222
  Serious: Yes (Other)
  Sender: FDA-Public Use
  Company Number: FR-ROCHE-757985

PATIENT
  Sex: Female
  Weight: 54 kg

DRUGS (3)
  1. LEVOTHYROXINE SODIUM [Concomitant]
     Dates: start: 20090101
  2. RIBAVIRIN [Suspect]
     Dosage: DOSE: 3-0-2
     Route: 048
     Dates: start: 20100311, end: 20110202
  3. PEGINTERFERON ALFA-2A [Suspect]
     Dosage: PERMANENTLY DISCONTINUED
     Route: 058
     Dates: start: 20100311, end: 20110127

REACTIONS (1)
  - ACOUSTIC NEURITIS [None]
